FAERS Safety Report 13239106 (Version 1)
Quarter: 2017Q1

REPORT INFORMATION
  Report Type: Spontaneous
  Country: IT (occurrence: IT)
  Receive Date: 20170216
  Receipt Date: 20170216
  Transmission Date: 20170428
  Serious: Yes (Death, Other)
  Sender: FDA-Public Use
  Company Number: IT-TEVA-738393ACC

PATIENT
  Age: 46 Year
  Sex: Female

DRUGS (2)
  1. CARBOPLATINO [Suspect]
     Active Substance: CARBOPLATIN
     Indication: BRENNER TUMOUR
  2. PACLITAXEL. [Suspect]
     Active Substance: PACLITAXEL
     Indication: BRENNER TUMOUR

REACTIONS (6)
  - Cardio-respiratory arrest [Fatal]
  - Jaundice [Unknown]
  - Total bile acids increased [Unknown]
  - Pruritus [Unknown]
  - Neutropenia [Unknown]
  - Hepatic enzyme increased [Unknown]
